FAERS Safety Report 25521946 (Version 2)
Quarter: 2025Q3

REPORT INFORMATION
  Report Type: Spontaneous
  Country: BR (occurrence: BR)
  Receive Date: 20250706
  Receipt Date: 20250805
  Transmission Date: 20251020
  Serious: No
  Sender: UCB
  Company Number: BR-UCBSA-2025040691

PATIENT
  Sex: Male

DRUGS (1)
  1. NEUPRO [Suspect]
     Active Substance: ROTIGOTINE
     Indication: Parkinson^s disease
     Route: 062
     Dates: start: 2022

REACTIONS (2)
  - Device issue [Unknown]
  - Product adhesion issue [Unknown]
